FAERS Safety Report 25551943 (Version 1)
Quarter: 2025Q3

REPORT INFORMATION
  Report Type: Report from Study
  Country: US (occurrence: US)
  Receive Date: 20250714
  Receipt Date: 20250714
  Transmission Date: 20251020
  Serious: Yes (Hospitalization, Other)
  Sender: ABBVIE
  Company Number: US-ABBVIE-6366794

PATIENT
  Age: 44 Year
  Sex: Male

DRUGS (1)
  1. RINVOQ [Suspect]
     Active Substance: UPADACITINIB
     Indication: Colitis ulcerative
     Route: 048
     Dates: start: 20220712

REACTIONS (2)
  - Colitis ulcerative [Recovered/Resolved]
  - Hernia [Recovering/Resolving]

NARRATIVE: CASE EVENT DATE: 20250601
